FAERS Safety Report 10050655 (Version 1)
Quarter: 2014Q2

REPORT INFORMATION
  Report Type: Spontaneous
  Country: US (occurrence: US)
  Receive Date: 20140401
  Receipt Date: 20140401
  Transmission Date: 20141212
  Serious: No
  Sender: FDA-Public Use
  Company Number: US-ASTRAZENECA-2013SE51471

PATIENT
  Age: 28 Year
  Sex: Male
  Weight: 60.3 kg

DRUGS (11)
  1. NEXIUM [Suspect]
     Indication: GASTROOESOPHAGEAL REFLUX DISEASE
     Dosage: BID
     Route: 048
  2. DEPAKANE [Concomitant]
     Indication: CONVULSION
     Route: 048
  3. FOLIC ACID [Concomitant]
     Indication: NUTRITIONAL SUPPLEMENTATION
     Route: 048
  4. SPIRONOLACTONE [Concomitant]
     Indication: CARDIAC DISORDER
     Route: 048
  5. MAGNESIUM [Concomitant]
     Indication: MINERAL SUPPLEMENTATION
     Route: 048
  6. LASIX [Concomitant]
     Indication: CARDIAC DISORDER
     Route: 048
  7. LIORESAL [Concomitant]
     Route: 048
  8. PROTONIX [Concomitant]
     Indication: GASTRITIS PROPHYLAXIS
     Route: 048
  9. KEPPRA [Concomitant]
     Route: 048
  10. MONOGRAPH [Concomitant]
     Indication: THYROID DISORDER
     Route: 048
  11. DOCUSATE SODIUM [Concomitant]
     Route: 048

REACTIONS (3)
  - Cough [Not Recovered/Not Resolved]
  - Vomiting [Not Recovered/Not Resolved]
  - Retching [Not Recovered/Not Resolved]
